FAERS Safety Report 17557514 (Version 1)
Quarter: 2020Q1

REPORT INFORMATION
  Report Type: Spontaneous
  Country: FR (occurrence: FR)
  Receive Date: 20200318
  Receipt Date: 20200318
  Transmission Date: 20200409
  Serious: Yes (Other)
  Sender: FDA-Public Use
  Company Number: FR-TEVA-2020-FR-1207492

PATIENT
  Age: 45 Year
  Sex: Female

DRUGS (2)
  1. PROGESTONE [Concomitant]
     Indication: PRODUCT USED FOR UNKNOWN INDICATION
     Dosage: 10 DAYS PER MONTH
     Route: 065
  2. ESTREVA [Suspect]
     Active Substance: ESTRADIOL
     Indication: HORMONE REPLACEMENT THERAPY
     Dosage: A TUBE EVERY MONTH
     Route: 065

REACTIONS (1)
  - Breast mass [Unknown]
